FAERS Safety Report 8800661 (Version 1)
Quarter: 2012Q4

REPORT INFORMATION
  Report Type: 
  Country: NG (occurrence: NG)
  Receive Date: 20120921
  Receipt Date: 20120921
  Transmission Date: 20130627
  Serious: Yes (Other)
  Sender: FDA-Public Use
  Company Number: NG-ROXANE LABORATORIES, INC.-2012-RO-01872RO

PATIENT
  Age: 60 Year
  Sex: Male

DRUGS (4)
  1. METHOTREXATE [Suspect]
     Indication: RHEUMATOID ARTHRITIS
     Dosage: 5 mg
  2. PROMETHAZINE [Suspect]
     Indication: STOMATITIS
  3. AMOXYCILLIN [Suspect]
     Indication: STOMATITIS
  4. METRONIDAZOLE [Suspect]
     Indication: STOMATITIS

REACTIONS (4)
  - Erythema multiforme [Recovered/Resolved]
  - Stomatitis [Recovered/Resolved]
  - Convulsion [Unknown]
  - Staphylococcal infection [Unknown]
